FAERS Safety Report 15676773 (Version 6)
Quarter: 2019Q2

REPORT INFORMATION
  Report Type: Spontaneous
  Country: JP (occurrence: JP)
  Receive Date: 20181130
  Receipt Date: 20190530
  Transmission Date: 20190711
  Serious: Yes (Other)
  Sender: FDA-Public Use
  Company Number: JP-ASTRAZENECA-2018SF53379

PATIENT
  Age: 20208 Day
  Sex: Male
  Weight: 57 kg

DRUGS (1)
  1. IMFINZI [Suspect]
     Active Substance: DURVALUMAB
     Indication: NON-SMALL CELL LUNG CANCER
     Route: 041
     Dates: start: 20180725, end: 20181108

REACTIONS (7)
  - Radiation pneumonitis [Recovering/Resolving]
  - Colitis [Recovering/Resolving]
  - Colitis ulcerative [Recovering/Resolving]
  - Hyperthyroidism [Recovered/Resolved]
  - Metastases to central nervous system [Unknown]
  - Hypoalbuminaemia [Not Recovered/Not Resolved]
  - Hypothyroidism [Not Recovered/Not Resolved]

NARRATIVE: CASE EVENT DATE: 20180731
